FAERS Safety Report 4284323-5 (Version None)
Quarter: 2004Q1

REPORT INFORMATION
  Report Type: 
  Country: None (occurrence: None)
  Receive Date: 20040130
  Receipt Date: 20040114
  Transmission Date: 20041129
  Serious: Yes (Hospitalization, Other)
  Sender: FDA-Public Use
  Company Number: USA031255624

PATIENT
  Age: 75 Year
  Sex: Female
  Weight: 73 kg

DRUGS (3)
  1. EVISTA [Suspect]
     Indication: OSTEOPENIA
     Dosage: 60 MG/DAY
     Dates: start: 20010801, end: 20031101
  2. PREMARIN [Concomitant]
  3. PROVERA [Concomitant]

REACTIONS (2)
  - ENDOMETRIAL CANCER STAGE I [None]
  - VAGINAL DISCHARGE [None]
